FAERS Safety Report 5292509-6 (Version None)
Quarter: 2007Q1

REPORT INFORMATION
  Report Type: 
  Country: None (occurrence: None)
  Receive Date: 20070326
  Receipt Date: 20070312
  Transmission Date: 20070707
  Serious: Yes (Other)
  Sender: FDA-Public Use
  Company Number: THYM-11242

PATIENT
  Age: 17 Year
  Sex: Male

DRUGS (6)
  1. THYMOGLOBULIN [Suspect]
     Indication: KIDNEY TRANSPLANT REJECTION
     Dosage: 150 MG IV
     Route: 042
     Dates: start: 20060130, end: 20060201
  2. THYMOGLOBULIN [Suspect]
     Indication: KIDNEY TRANSPLANT REJECTION
     Dosage: 200 MG IV
     Route: 042
     Dates: start: 20060201, end: 20060201
  3. THYMOGLOBULIN [Suspect]
     Indication: KIDNEY TRANSPLANT REJECTION
     Dosage: 200 MG QD IV
     Dates: start: 20070131, end: 20070206
  4. BENADRYL [Concomitant]
  5. TYLENOL [Concomitant]
  6. SOLU-MEDROL [Concomitant]

REACTIONS (6)
  - CELLULITIS [None]
  - INFUSION RELATED REACTION [None]
  - PAIN IN EXTREMITY [None]
  - PHLEBITIS [None]
  - PYREXIA [None]
  - TACHYCARDIA [None]
